FAERS Safety Report 9715420 (Version 1)
Quarter: 2013Q4

REPORT INFORMATION
  Report Type: Spontaneous
  Country: US (occurrence: US)
  Receive Date: 20131127
  Receipt Date: 20131127
  Transmission Date: 20140711
  Serious: Yes (Death, Hospitalization)
  Sender: FDA-Public Use
  Company Number: US-INDICUS PHARMA-000136

PATIENT
  Age: 49 Year
  Sex: Female

DRUGS (2)
  1. METFORMIN HYDROCHLORIDE [Suspect]
     Dosage: 60 TABLETS OF 500 MG METFORMIN
     Route: 048
  2. LISINOPRIL/HCTZ [Suspect]
     Dosage: 12.5 MG HYDROCHLOROTHIAZIDE/20 MG LISINOPRIL
     Route: 048

REACTIONS (5)
  - Overdose [Fatal]
  - Lactic acidosis [Fatal]
  - Renal failure acute [Unknown]
  - Pulseless electrical activity [Unknown]
  - Hypotension [Unknown]
